FAERS Safety Report 8113103-5 (Version None)
Quarter: 2012Q1

REPORT INFORMATION
  Report Type: 
  Country: None (occurrence: None)
  Receive Date: 20120203
  Receipt Date: 20120126
  Transmission Date: 20120608
  Serious: Yes (Other)
  Sender: FDA-Public Use
  Company Number: US-ABBOTT-12P-163-0898702-00

PATIENT
  Sex: Male
  Weight: 92.162 kg

DRUGS (5)
  1. HUMIRA [Suspect]
     Indication: CROHN'S DISEASE
     Dates: start: 20110501
  2. CIMZIA [Suspect]
     Indication: CROHN'S DISEASE
     Dates: end: 20110301
  3. APRISO [Concomitant]
     Indication: CROHN'S DISEASE
  4. ELAVIL [Concomitant]
     Indication: IRRITABLE BOWEL SYNDROME
  5. MERCAPTOPURINE [Concomitant]
     Indication: CROHN'S DISEASE

REACTIONS (2)
  - DISSEMINATED LARGE CELL LYMPHOMA [None]
  - NECK MASS [None]
